FAERS Safety Report 9905057 (Version 1)
Quarter: 2014Q1

REPORT INFORMATION
  Report Type: Spontaneous
  Country: US (occurrence: US)
  Receive Date: 20140218
  Receipt Date: 20140218
  Transmission Date: 20141002
  Serious: No
  Sender: FDA-Public Use
  Company Number: US-GILEAD-2012-0051346

PATIENT
  Age: 63 Year
  Sex: Female

DRUGS (4)
  1. LETAIRIS [Suspect]
     Indication: PRODUCT USED FOR UNKNOWN INDICATION
     Dosage: 5 MG, UNK
     Route: 048
  2. LETAIRIS [Suspect]
     Dosage: UNK
     Route: 048
  3. ADCIRCA [Concomitant]
  4. REMODULIN [Concomitant]

REACTIONS (1)
  - Pain in extremity [Unknown]
